FAERS Safety Report 5583091-4 (Version None)
Quarter: 2007Q4

REPORT INFORMATION
  Report Type: 
  Country: None (occurrence: None)
  Receive Date: 20071231
  Receipt Date: 20071219
  Transmission Date: 20080405
  Serious: Yes (Hospitalization)
  Sender: FDA-Public Use
  Company Number: ENT 2007-0221

PATIENT
  Age: 73 Year
  Sex: Female

DRUGS (10)
  1. COMTAN [Suspect]
     Indication: PARKINSON'S DISEASE
     Dosage: 300 MG (100 MG, 3 IN 1 D) ORAL
     Route: 048
     Dates: start: 20070905
  2. PRAMIPEXOLE DIHYDROCHLORIDE [Suspect]
     Indication: PARKINSON'S DISEASE
     Dosage: 2.5 MG ORAL
     Route: 048
     Dates: start: 20070502
  3. NEO DOPASTON [Concomitant]
  4. PRAMIVERINE HYDROCHLORIDE [Concomitant]
  5. SELBEX [Concomitant]
  6. ASPIRIN [Concomitant]
  7. BUP-4 [Concomitant]
  8. PANTOSIN [Concomitant]
  9. MAGLAX (MAGNESIUM OXIDE) [Concomitant]
  10. RIVOTRIL [Concomitant]

REACTIONS (4)
  - DAYDREAMING [None]
  - FATIGUE [None]
  - ORAL INTAKE REDUCED [None]
  - SOMNOLENCE [None]
